FAERS Safety Report 6579369-8 (Version None)
Quarter: 2010Q1

REPORT INFORMATION
  Report Type: 
  Country: None (occurrence: None)
  Receive Date: 20100212
  Receipt Date: 20100201
  Transmission Date: 20100710
  Serious: Yes (Other)
  Sender: FDA-Public Use
  Company Number: US-ELI_LILLY_AND_COMPANY-US201002001119

PATIENT
  Age: 39 Year
  Sex: Male

DRUGS (4)
  1. ZYPREXA [Suspect]
     Indication: MAJOR DEPRESSION
     Dosage: 20 MG, DAILY (1/D)
     Route: 065
  2. TEGRETOL [Concomitant]
     Dosage: UNK, UNKNOWN
     Route: 065
  3. LAMICTAL [Concomitant]
     Dosage: UNK, UNKNOWN
     Route: 065
  4. DEPAKOTE [Concomitant]
     Dosage: UNK, UNKNOWN
     Route: 065

REACTIONS (3)
  - AMPUTATION [None]
  - DIABETES MELLITUS [None]
  - FOOT AMPUTATION [None]
